FAERS Safety Report 5132022-X (Version None)
Quarter: 2006Q4

REPORT INFORMATION
  Report Type: 
  Country: None (occurrence: None)
  Receive Date: 20061017
  Receipt Date: 20061004
  Transmission Date: 20070319
  Serious: Yes (Hospitalization)
  Sender: FDA-Public Use
  Company Number: 2006BI007887

PATIENT
  Age: 61 Year
  Sex: Female
  Weight: 65.318 kg

DRUGS (8)
  1. AVONEX [Suspect]
     Indication: MULTIPLE SCLEROSIS
     Dosage: 30 UG; QW
     Dates: start: 20020903, end: 20040301
  2. AVONEX [Suspect]
     Indication: MULTIPLE SCLEROSIS
     Dosage: 30  UG; QW; IM
     Route: 030
  3. AVONEX [Suspect]
     Indication: MULTIPLE SCLEROSIS
     Dosage: 30 UG; QW; IM
     Route: 030
     Dates: start: 20060701
  4. AXID [Concomitant]
  5. DITROPAN XL [Concomitant]
  6. PROVIGIL [Concomitant]
  7. FLONASE [Concomitant]
  8. PERCOCET [Concomitant]

REACTIONS (1)
  - CELLULITIS [None]
